FAERS Safety Report 4595949-3 (Version None)
Quarter: 2005Q1

REPORT INFORMATION
  Report Type: 
  Country: None (occurrence: None)
  Receive Date: 20050224
  Receipt Date: 20050209
  Transmission Date: 20050727
  Serious: Yes (Hospitalization)
  Sender: FDA-Public Use
  Company Number: EWC050242713

PATIENT
  Age: 33 Year
  Sex: Male
  Weight: 69.8539 kg

DRUGS (2)
  1. ZYPREXA [Suspect]
     Indication: SCHIZOPHRENIA, PARANOID TYPE
     Dosage: 250MG/1
     Dates: start: 20050208, end: 20050208
  2. IDALPREM (LORAZEPAM) [Concomitant]

REACTIONS (14)
  - AGITATION [None]
  - CONFUSIONAL STATE [None]
  - DELIRIUM [None]
  - DISORIENTATION [None]
  - DYSARTHRIA [None]
  - FAMILY STRESS [None]
  - IMPULSIVE BEHAVIOUR [None]
  - INTENTIONAL MISUSE [None]
  - LOSS OF EMPLOYMENT [None]
  - NERVOUSNESS [None]
  - OVERDOSE [None]
  - PSYCHOMOTOR AGITATION [None]
  - SUICIDE ATTEMPT [None]
  - THINKING ABNORMAL [None]
